FAERS Safety Report 9242310 (Version 3)
Quarter: 2013Q2

REPORT INFORMATION
  Report Type: Spontaneous
  Country: AE (occurrence: AE)
  Receive Date: 20130419
  Receipt Date: 20130513
  Transmission Date: 20140414
  Serious: Yes (Other)
  Sender: FDA-Public Use
  Company Number: AE-JNJFOC-20130409501

PATIENT
  Sex: Female
  Weight: 104.7 kg

DRUGS (2)
  1. REMICADE [Suspect]
     Indication: PSORIASIS
     Route: 042
     Dates: start: 20100111
  2. STEROIDS NOS [Suspect]
     Indication: PREMEDICATION
     Route: 065

REACTIONS (3)
  - Adrenal insufficiency [Unknown]
  - Infusion related reaction [Unknown]
  - Psoriasis [Unknown]
